FAERS Safety Report 5461137-1 (Version None)
Quarter: 2007Q3

REPORT INFORMATION
  Report Type: 
  Country: None (occurrence: None)
  Receive Date: 20070920
  Receipt Date: 20070918
  Transmission Date: 20080115
  Serious: Yes (Death, Hospitalization)
  Sender: FDA-Public Use
  Company Number: PHBS2007JP15082

PATIENT

DRUGS (3)
  1. TEGRETOL [Suspect]
     Route: 048
  2. PHENYTOIN [Suspect]
     Route: 065
  3. PHENOBARBITAL TAB [Concomitant]
     Route: 065

REACTIONS (2)
  - DEATH [None]
  - DRUG ERUPTION [None]
